FAERS Safety Report 6188721-4 (Version None)
Quarter: 2009Q2

REPORT INFORMATION
  Report Type: 
  Country: None (occurrence: None)
  Receive Date: 20090513
  Receipt Date: 20090501
  Transmission Date: 20091009
  Serious: Yes (Other)
  Sender: FDA-Public Use
  Company Number: CA-JNJFOC-20090106052

PATIENT
  Sex: Female
  Weight: 80 kg

DRUGS (5)
  1. REMICADE [Suspect]
     Route: 042
  2. REMICADE [Suspect]
     Indication: PSORIASIS
     Route: 042
  3. ELTROXIN [Concomitant]
     Indication: HYPOTHYROIDISM
  4. METHOTREXATE [Concomitant]
     Indication: PSORIASIS
     Route: 058
  5. FOLIC ACID [Concomitant]

REACTIONS (3)
  - AUTOIMMUNE THYROIDITIS [None]
  - DRUG INEFFECTIVE [None]
  - PHARYNGITIS STREPTOCOCCAL [None]
